FAERS Safety Report 15634159 (Version 1)
Quarter: 2018Q4

REPORT INFORMATION
  Report Type: Spontaneous
  Country: GB (occurrence: GB)
  Receive Date: 20181119
  Receipt Date: 20181119
  Transmission Date: 20190205
  Serious: Yes (Other)
  Sender: FDA-Public Use
  Company Number: GB-PFIZER INC-2018467045

PATIENT
  Sex: Female

DRUGS (2)
  1. GENOTROPIN [Suspect]
     Active Substance: SOMATROPIN
  2. SAIZEN [Suspect]
     Active Substance: SOMATROPIN

REACTIONS (2)
  - Secretion discharge [Unknown]
  - Lower respiratory tract infection [Unknown]
